FAERS Safety Report 9133086 (Version 1)
Quarter: 2013Q1

REPORT INFORMATION
  Report Type: Spontaneous
  Country: US (occurrence: US)
  Receive Date: 20130107
  Receipt Date: 20130107
  Transmission Date: 20140127
  Serious: No
  Sender: FDA-Public Use
  Company Number: US-ASTRAZENECA-2011SE77844

PATIENT
  Age: 32 Year
  Sex: Male
  Weight: 79.4 kg

DRUGS (5)
  1. SEROQUEL XR [Suspect]
     Indication: BIPOLAR DISORDER
     Route: 048
     Dates: start: 2011, end: 201210
  2. SEROQUEL XR [Suspect]
     Indication: BIPOLAR DISORDER
     Route: 048
  3. ATENOLOL [Suspect]
     Indication: HEART RATE INCREASED
     Route: 048
     Dates: start: 2008
  4. LAMICTAL [Concomitant]
     Indication: BIPOLAR DISORDER
     Dates: start: 2011
  5. NEURONTIN [Concomitant]
     Indication: DYSURIA
     Dates: start: 201209

REACTIONS (3)
  - Weight increased [Unknown]
  - Somnolence [Unknown]
  - Drug ineffective [Unknown]
